FAERS Safety Report 24203080 (Version 1)
Quarter: 2024Q3

REPORT INFORMATION
  Report Type: Report from Study
  Country: US (occurrence: US)
  Receive Date: 20240813
  Receipt Date: 20240813
  Transmission Date: 20241017
  Serious: Yes (Other)
  Sender: ABBVIE
  Company Number: US-ABBVIE-5873983

PATIENT
  Sex: Female

DRUGS (1)
  1. HUMIRA [Suspect]
     Active Substance: ADALIMUMAB
     Indication: Psoriasis
     Route: 058
     Dates: start: 20210730

REACTIONS (4)
  - Incision site haemorrhage [Not Recovered/Not Resolved]
  - Parathyroid gland operation [Not Recovered/Not Resolved]
  - Insomnia [Unknown]
  - Discomfort [Unknown]
